FAERS Safety Report 20116043 (Version 2)
Quarter: 2021Q4

REPORT INFORMATION
  Report Type: Report from Study
  Country: CA (occurrence: CA)
  Receive Date: 20211126
  Receipt Date: 20211221
  Transmission Date: 20220304
  Serious: Yes (Other)
  Sender: FDA-Public Use
  Company Number: CA-JNJFOC-20211110794

PATIENT
  Age: 38 Year
  Sex: Female
  Weight: 76.1 kg

DRUGS (1)
  1. REMICADE [Suspect]
     Active Substance: INFLIXIMAB
     Indication: Colitis ulcerative
     Dosage: ON 24/SEP/2021, THE PATIENT HAD RECEIVED LAST DOSE OF REMICADE THERAPY.
     Route: 042
     Dates: start: 20200615, end: 20210924

REACTIONS (3)
  - Herpes ophthalmic [Unknown]
  - Diarrhoea [Unknown]
  - Abdominal pain upper [Unknown]

NARRATIVE: CASE EVENT DATE: 20211101
